FAERS Safety Report 25337839 (Version 1)
Quarter: 2025Q2

REPORT INFORMATION
  Report Type: Spontaneous
  Country: US (occurrence: US)
  Receive Date: 20250520
  Receipt Date: 20250520
  Transmission Date: 20250716
  Serious: Yes (Hospitalization, Other)
  Sender: GLAXOSMITHKLINE
  Company Number: US-GSKJP-US2025AMR060438AA

PATIENT

DRUGS (32)
  1. ATOVAQUONE [Interacting]
     Active Substance: ATOVAQUONE
     Indication: Product used for unknown indication
  2. JAKAFI [Suspect]
     Active Substance: RUXOLITINIB
     Indication: Product used for unknown indication
     Dosage: 10 MG, BID
  3. JAKAFI [Suspect]
     Active Substance: RUXOLITINIB
     Dosage: 5 MG, BID
     Dates: start: 202112
  4. CANAKINUMAB [Suspect]
     Active Substance: CANAKINUMAB
     Indication: Still^s disease
     Dates: start: 201510, end: 201605
  5. TACROLIMUS [Suspect]
     Active Substance: TACROLIMUS
     Indication: Product used for unknown indication
     Dates: start: 201606
  6. TACROLIMUS [Suspect]
     Active Substance: TACROLIMUS
     Dates: start: 20160524
  7. TACROLIMUS [Suspect]
     Active Substance: TACROLIMUS
     Dates: start: 201904
  8. TOFACITINIB [Suspect]
     Active Substance: TOFACITINIB
     Indication: Product used for unknown indication
     Dates: start: 202007
  9. TOFACITINIB [Suspect]
     Active Substance: TOFACITINIB
     Dosage: UNK, BID
     Dates: start: 20210901
  10. PREDNISOLONE [Suspect]
     Active Substance: PREDNISOLONE
     Indication: Product used for unknown indication
     Dates: start: 2016
  11. PREDNISOLONE [Suspect]
     Active Substance: PREDNISOLONE
     Dates: start: 2019
  12. PREDNISOLONE [Suspect]
     Active Substance: PREDNISOLONE
     Dosage: 9 MG, QD
  13. PREDNISOLONE [Suspect]
     Active Substance: PREDNISOLONE
  14. PREDNISOLONE [Suspect]
     Active Substance: PREDNISOLONE
     Dates: start: 202007
  15. PREDNISOLONE [Suspect]
     Active Substance: PREDNISOLONE
     Dosage: 9 MG, QD
     Dates: start: 20210901
  16. PREDNISOLONE [Suspect]
     Active Substance: PREDNISOLONE
     Dosage: 6 MG, QD
     Dates: start: 20211022
  17. PREDNISOLONE [Suspect]
     Active Substance: PREDNISOLONE
     Dosage: 9 MG, QD
  18. METHYLPREDNISOLONE [Suspect]
     Active Substance: METHYLPREDNISOLONE
     Indication: Product used for unknown indication
     Dosage: 500 MG, WE
     Route: 042
  19. METHYLPREDNISOLONE [Suspect]
     Active Substance: METHYLPREDNISOLONE
     Dosage: UNK, Q4W
     Dates: start: 201806, end: 201809
  20. ANAKINRA [Suspect]
     Active Substance: ANAKINRA
     Indication: Product used for unknown indication
  21. ANAKINRA [Suspect]
     Active Substance: ANAKINRA
     Dates: start: 2016
  22. ANAKINRA [Suspect]
     Active Substance: ANAKINRA
     Dosage: 100 MG, BID
     Dates: start: 201712
  23. ANAKINRA [Suspect]
     Active Substance: ANAKINRA
     Dosage: UNK, BID
     Dates: start: 201904
  24. ANAKINRA [Suspect]
     Active Substance: ANAKINRA
     Dosage: UNK, QD
     Dates: start: 202104
  25. ANAKINRA [Suspect]
     Active Substance: ANAKINRA
     Dosage: UNK, BID
     Dates: start: 20211022
  26. ANAKINRA [Suspect]
     Active Substance: ANAKINRA
     Dosage: 100 MG
  27. PENTAMIDINE [Suspect]
     Active Substance: PENTAMIDINE
     Indication: Product used for unknown indication
     Dates: start: 201712
  28. PENTAMIDINE [Suspect]
     Active Substance: PENTAMIDINE
     Dosage: UNK, Q4W
     Route: 042
  29. CYCLOPHOSPHAMIDE\DOXORUBICIN\PREDNISONE\VINCRISTINE [Concomitant]
     Active Substance: CYCLOPHOSPHAMIDE\DOXORUBICIN\PREDNISONE\VINCRISTINE
     Indication: Product used for unknown indication
     Dates: start: 201508
  30. METHOTREXATE SODIUM [Concomitant]
     Active Substance: METHOTREXATE SODIUM
     Indication: Product used for unknown indication
  31. PREDNISONE [Concomitant]
     Active Substance: PREDNISONE
     Indication: Product used for unknown indication
  32. ACTEMRA [Concomitant]
     Active Substance: TOCILIZUMAB
     Indication: Product used for unknown indication

REACTIONS (15)
  - Haemophagocytic lymphohistiocytosis [Unknown]
  - Inflammatory bowel disease [Unknown]
  - Haematochezia [Unknown]
  - Hyperferritinaemia [Unknown]
  - Disease progression [Unknown]
  - Pyrexia [Unknown]
  - Dermatitis atopic [Not Recovered/Not Resolved]
  - Rash [Unknown]
  - Bronchial atresia [Unknown]
  - Red blood cell sedimentation rate increased [Unknown]
  - Condition aggravated [Unknown]
  - Gastrointestinal disorder [Unknown]
  - Dactylitis [Unknown]
  - Viral infection [Unknown]
  - Hyperferritinaemia [Unknown]

NARRATIVE: CASE EVENT DATE: 20150301
